FAERS Safety Report 17501212 (Version 2)
Quarter: 2020Q2

REPORT INFORMATION
  Report Type: Report from Study
  Country: CA (occurrence: CA)
  Receive Date: 20200305
  Receipt Date: 20200407
  Transmission Date: 20200713
  Serious: Yes (Hospitalization)
  Sender: FDA-Public Use
  Company Number: CA-JNJFOC-20200141256

PATIENT
  Age: 32 Year
  Sex: Male
  Weight: 77.8 kg

DRUGS (2)
  1. REMICADE [Suspect]
     Active Substance: INFLIXIMAB
     Route: 042
  2. REMICADE [Suspect]
     Active Substance: INFLIXIMAB
     Indication: CROHN^S DISEASE
     Route: 042

REACTIONS (4)
  - Abdominal pain [Recovering/Resolving]
  - Nasal discharge discolouration [Unknown]
  - Anal fistula [Unknown]
  - Candida infection [Unknown]

NARRATIVE: CASE EVENT DATE: 20200125
